FAERS Safety Report 4724641-7 (Version None)
Quarter: 2005Q3

REPORT INFORMATION
  Report Type: 
  Country: None (occurrence: None)
  Receive Date: 20050719
  Receipt Date: 20050719
  Transmission Date: 20060218
  Serious: Yes (Death)
  Sender: FDA-Public Use
  Company Number: None

PATIENT
  Sex: Female

DRUGS (1)
  1. PARAPLATIN [Suspect]

REACTIONS (28)
  - ADHESION [None]
  - ANAEMIA [None]
  - ANEURYSM [None]
  - AORTIC THROMBOSIS [None]
  - BLADDER DISORDER [None]
  - CONSTIPATION [None]
  - CORONARY ARTERY THROMBOSIS [None]
  - COUGH [None]
  - DEHYDRATION [None]
  - DISEASE RECURRENCE [None]
  - DRUG INEFFECTIVE [None]
  - EJECTION FRACTION DECREASED [None]
  - ENDOMETRIAL CANCER [None]
  - GASTRIC NEOPLASM [None]
  - IMMUNOSUPPRESSION [None]
  - INFECTION [None]
  - INFUSION RELATED REACTION [None]
  - LARGE INTESTINE PERFORATION [None]
  - LOSS OF CONSCIOUSNESS [None]
  - MYOCARDIAL INFARCTION [None]
  - NEOPLASM MALIGNANT [None]
  - OVERDOSE [None]
  - POST PROCEDURAL HAEMORRHAGE [None]
  - PURULENT DISCHARGE [None]
  - STARVATION [None]
  - WEIGHT DECREASED [None]
  - WOUND DEHISCENCE [None]
  - WOUND INFECTION [None]
